FAERS Safety Report 11247220 (Version 2)
Quarter: 2015Q3

REPORT INFORMATION
  Report Type: Spontaneous
  Country: DK (occurrence: DK)
  Receive Date: 20150708
  Receipt Date: 20150814
  Transmission Date: 20151125
  Serious: Yes (Hospitalization, Other)
  Sender: FDA-Public Use
  Company Number: DK-JNJFOC-20150622664

PATIENT
  Sex: Female
  Weight: 60 kg

DRUGS (3)
  1. RISPERDAL [Suspect]
     Active Substance: RISPERIDONE
     Indication: SCHIZOPHRENIA, PARANOID TYPE
     Route: 048
  2. ZYPREXA [Suspect]
     Active Substance: OLANZAPINE
     Indication: SCHIZOPHRENIA, PARANOID TYPE
     Route: 048
  3. SEROQUEL [Suspect]
     Active Substance: QUETIAPINE FUMARATE
     Indication: SCHIZOPHRENIA, PARANOID TYPE
     Route: 065

REACTIONS (14)
  - Myalgia [Unknown]
  - Glucose tolerance impaired [Unknown]
  - Hypertension [Recovered/Resolved]
  - Body temperature decreased [Unknown]
  - Muscle atrophy [Unknown]
  - Insomnia [Not Recovered/Not Resolved]
  - Pulse pressure increased [Unknown]
  - Blood cholesterol increased [Unknown]
  - Muscle contracture [Unknown]
  - Renal failure [Unknown]
  - Neurological symptom [Unknown]
  - Paraesthesia [Unknown]
  - Fall [Recovered/Resolved]
  - Muscular weakness [Unknown]
